FAERS Safety Report 9413153 (Version 1)
Quarter: 2013Q3

REPORT INFORMATION
  Report Type: Spontaneous
  Country: GB (occurrence: GB)
  Receive Date: 20130722
  Receipt Date: 20130722
  Transmission Date: 20140515
  Serious: Yes (Life-Threatening, Other)
  Sender: FDA-Public Use
  Company Number: GB-BRISTOL-MYERS SQUIBB COMPANY-19126721

PATIENT
  Age: 47 Year
  Sex: Male
  Weight: 89 kg

DRUGS (11)
  1. ABATACEPT [Suspect]
     Indication: SJOGREN^S SYNDROME
     Dosage: INFUSION
     Route: 042
     Dates: start: 20130628
  2. METHOTREXATE [Concomitant]
  3. FOLIC ACID [Concomitant]
  4. ORAMORPH [Concomitant]
  5. ZOMORPH [Concomitant]
  6. VENLAFAXINE HCL [Concomitant]
  7. OMEPRAZOLE [Concomitant]
  8. SERTRALINE [Concomitant]
  9. PARACETAMOL [Concomitant]
  10. TAMSULOSIN [Concomitant]
  11. RAMIPRIL [Concomitant]

REACTIONS (1)
  - Intestinal ischaemia [Recovering/Resolving]
